FAERS Safety Report 17394374 (Version 1)
Quarter: 2020Q1

REPORT INFORMATION
  Report Type: Spontaneous
  Country: DE (occurrence: DE)
  Receive Date: 20200210
  Receipt Date: 20200210
  Transmission Date: 20200409
  Serious: Yes (Other)
  Sender: FDA-Public Use
  Company Number: DE-TEVA-2020-DE-1179022

PATIENT
  Age: 31 Year
  Sex: Male

DRUGS (4)
  1. RITUXIMAB. [Suspect]
     Active Substance: RITUXIMAB
     Indication: LYMPHOMA
     Dosage: FIVE CYCLES WITH HIGH-DOSE CYTARABINE FOLLOWED BY ANOTHER CYCLE OF RITUXIMAB MONOTHERAPY
     Route: 065
     Dates: start: 201304
  2. PREDNISOLONE. [Suspect]
     Active Substance: PREDNISOLONE
     Indication: LYMPHOMA
     Dates: start: 2015
  3. CYTARABINE. [Concomitant]
     Active Substance: CYTARABINE
     Indication: LYMPHOMA
     Dosage: HIGH DOSE
     Route: 065
     Dates: start: 201304
  4. MYCOPHENOLATE-MOFETIL [Concomitant]
     Active Substance: MYCOPHENOLATE MOFETIL
     Indication: LYMPHOMA
     Route: 065

REACTIONS (1)
  - Hepatitis E [Unknown]
